FAERS Safety Report 4450124-8 (Version None)
Quarter: 2004Q3

REPORT INFORMATION
  Report Type: 
  Country: None (occurrence: None)
  Receive Date: 20040802
  Receipt Date: 20031121
  Transmission Date: 20050211
  Serious: Yes (Other)
  Sender: FDA-Public Use
  Company Number: US-SHR-03-017785

PATIENT

DRUGS (1)
  1. MAGNEVIST [Suspect]
     Dosage: 1 DOSE
     Dates: start: 20031119, end: 20031119

REACTIONS (2)
  - ABDOMINAL PAIN [None]
  - WHEEZING [None]
